FAERS Safety Report 7298063-1 (Version None)
Quarter: 2011Q1

REPORT INFORMATION
  Report Type: 
  Country: None (occurrence: None)
  Receive Date: 20110217
  Receipt Date: 20110204
  Transmission Date: 20110831
  Serious: Yes (Hospitalization)
  Sender: FDA-Public Use
  Company Number: PHHY2011JP06753

PATIENT
  Age: 81 Year
  Sex: Male

DRUGS (1)
  1. ZOMETA [Suspect]
     Indication: METASTASES TO BONE
     Dosage: 4.0 MG/ 2 MONTHS
     Route: 041
     Dates: start: 20090401

REACTIONS (7)
  - CELLULITIS [None]
  - OSTEONECROSIS OF JAW [None]
  - IMPAIRED HEALING [None]
  - SWELLING [None]
  - BONE DISORDER [None]
  - PAIN IN JAW [None]
  - OSTEITIS [None]
